FAERS Safety Report 6134967-0 (Version None)
Quarter: 2009Q1

REPORT INFORMATION
  Report Type: 
  Country: None (occurrence: None)
  Receive Date: 20090327
  Receipt Date: 20090316
  Transmission Date: 20090719
  Serious: Yes (Death, Other)
  Sender: FDA-Public Use
  Company Number: ES-JNJFOC-20090305059

PATIENT
  Sex: Male

DRUGS (3)
  1. REMICADE [Suspect]
     Indication: RHEUMATOID ARTHRITIS
     Route: 042
  2. NSAIDS [Concomitant]
  3. OMEPRAZOLE [Concomitant]

REACTIONS (2)
  - LYMPH NODE TUBERCULOSIS [None]
  - MYOCARDIAL ISCHAEMIA [None]
